FAERS Safety Report 7145866-X (Version None)
Quarter: 2010Q4

REPORT INFORMATION
  Report Type: 
  Country: None (occurrence: None)
  Receive Date: 20101208
  Receipt Date: 20101202
  Transmission Date: 20110411
  Serious: Yes (Hospitalization)
  Sender: FDA-Public Use
  Company Number: B0686985A

PATIENT
  Age: 25 Year
  Sex: Female
  Weight: 82 kg

DRUGS (3)
  1. COMBIVIR [Suspect]
     Indication: ANTIRETROVIRAL THERAPY
     Dosage: 2IUAX PER DAY
     Route: 048
     Dates: start: 20100721, end: 20101105
  2. KALETRA [Suspect]
     Indication: ANTIRETROVIRAL THERAPY
     Dosage: 4IUAX PER DAY
     Route: 048
     Dates: start: 20100721, end: 20101105
  3. PEPTAC [Concomitant]

REACTIONS (2)
  - ALANINE AMINOTRANSFERASE INCREASED [None]
  - LIVER FUNCTION TEST ABNORMAL [None]
